FAERS Safety Report 9771889 (Version 1)
Quarter: 2013Q3

REPORT INFORMATION
  Report Type: Spontaneous
  Country: US (occurrence: None)
  Receive Date: 20130927
  Receipt Date: 20130927
  Transmission Date: 20140515
  Serious: Yes (Other)
  Sender: FDA-Public Use
  Company Number: USA/USA/13/0030002

PATIENT
  Age: 64 Year
  Sex: Male
  Weight: 68.04 kg

DRUGS (1)
  1. CIPROFLOXACIN HYDROCHLORIDE [Suspect]
     Indication: URINARY TRACT INFECTION
     Dosage: 500 MG, 2 IN 1 D, ORAL
     Route: 048
     Dates: start: 20130531, end: 20130606

REACTIONS (8)
  - Squamous cell carcinoma of skin [None]
  - Tinnitus [None]
  - Rash [None]
  - Drug resistance [None]
  - Drug ineffective [None]
  - Skin fissures [None]
  - Scab [None]
  - Product quality issue [None]
